FAERS Safety Report 13945263 (Version 1)
Quarter: 2017Q3

REPORT INFORMATION
  Report Type: Spontaneous
  Country: GB (occurrence: GB)
  Receive Date: 20170907
  Receipt Date: 20170907
  Transmission Date: 20171128
  Serious: Yes (Other)
  Sender: FDA-Public Use
  Company Number: GB-TORRENT-00015570

PATIENT
  Age: 25 Year
  Sex: Female
  Weight: 63 kg

DRUGS (5)
  1. DOCUSATE [Concomitant]
     Active Substance: DOCUSATE
  2. BUSCOPAN [Concomitant]
     Active Substance: BUTYLSCOPOLAMINE BROMIDE
  3. DULOXETINE. [Suspect]
     Active Substance: DULOXETINE
  4. PARACETAMOL [Concomitant]
     Active Substance: ACETAMINOPHEN
  5. CODEINE PHOSPHATE [Concomitant]
     Active Substance: CODEINE PHOSPHATE

REACTIONS (3)
  - Suicidal ideation [Recovered/Resolved]
  - Dizziness postural [Recovered/Resolved]
  - Sensory loss [Recovered/Resolved]

NARRATIVE: CASE EVENT DATE: 20170115
